FAERS Safety Report 9049535 (Version 1)
Quarter: 2013Q1

REPORT INFORMATION
  Report Type: Spontaneous
  Country: DE (occurrence: DE)
  Receive Date: 20130205
  Receipt Date: 20130205
  Transmission Date: 20140127
  Serious: Yes (Congenital Anomaly)
  Sender: FDA-Public Use
  Company Number: DE-MYLANLABS-2013S1001686

PATIENT
  Sex: 0

DRUGS (4)
  1. PAROXETIN [Suspect]
     Dosage: 40 [MG/D ]
     Route: 064
  2. LEPONEX [Suspect]
     Dosage: 400 [MG/D ]
     Route: 064
  3. FOLIC ACID [Concomitant]
     Indication: PROPHYLAXIS OF NEURAL TUBE DEFECT
     Route: 064
  4. CYTOTEC [Concomitant]
     Route: 064

REACTIONS (4)
  - Exposure during pregnancy [Unknown]
  - Renal aplasia [Not Recovered/Not Resolved]
  - Renal hypoplasia [Unknown]
  - Pulmonary hypoplasia [Unknown]
